FAERS Safety Report 14596243 (Version 3)
Quarter: 2018Q1

REPORT INFORMATION
  Report Type: Spontaneous
  Country: US (occurrence: US)
  Receive Date: 20180303
  Receipt Date: 20180316
  Transmission Date: 20180509
  Serious: Yes (Other)
  Sender: FDA-Public Use
  Company Number: US-TEVA-2018-US-864828

PATIENT
  Age: 81 Year
  Sex: Male

DRUGS (1)
  1. CLOTRIMAZOLE. [Suspect]
     Active Substance: CLOTRIMAZOLE
     Indication: RASH PRURITIC
     Dosage: DOSE STRENGTH:  1%/0.05%
     Route: 065
     Dates: start: 20180220, end: 20180220

REACTIONS (2)
  - Haemorrhage [Recovered/Resolved]
  - Expired product administered [Unknown]

NARRATIVE: CASE EVENT DATE: 20180221
